FAERS Safety Report 4999415-2 (Version None)
Quarter: 2006Q2

REPORT INFORMATION
  Report Type: 
  Country: None (occurrence: None)
  Receive Date: 20060509
  Receipt Date: 20060509
  Transmission Date: 20061013
  Serious: Yes (Life-Threatening, Hospitalization)
  Sender: FDA-Public Use
  Company Number: None

PATIENT
  Age: 63 Year
  Sex: Female
  Weight: 105 kg

DRUGS (9)
  1. DIGOXIN [Suspect]
     Indication: CARDIAC FAILURE CONGESTIVE
     Dosage: 0.125MG PO QD
     Route: 048
  2. COREG [Concomitant]
  3. IMDUR [Concomitant]
  4. IBUPROFEN [Concomitant]
  5. LOVASTATIN [Concomitant]
  6. LASIX [Concomitant]
  7. TERAZOSIN HCL [Concomitant]
  8. LISINOPRIL [Concomitant]
  9. AVANDIA [Concomitant]

REACTIONS (7)
  - ANXIETY [None]
  - BLOOD CREATININE INCREASED [None]
  - CARDIAC DISORDER [None]
  - DYSPNOEA [None]
  - FEELING ABNORMAL [None]
  - HYPERHIDROSIS [None]
  - ORTHOPNOEA [None]
